FAERS Safety Report 7687857-6 (Version None)
Quarter: 2011Q3

REPORT INFORMATION
  Report Type: 
  Country: None (occurrence: None)
  Receive Date: 20110815
  Receipt Date: 20110815
  Transmission Date: 20111222
  Serious: Yes (Other)
  Sender: FDA-Public Use
  Company Number: None

PATIENT
  Sex: Male
  Weight: 143.3367 kg

DRUGS (5)
  1. ALTRACE [Concomitant]
  2. RAMIPRIL [Suspect]
     Indication: HYPERTENSION
     Dosage: 5MG  1 CAP QD ORAL
     Route: 048
     Dates: start: 20080711, end: 20080712
  3. RAMIPRIL [Suspect]
     Indication: CARDIOMYOPATHY
     Dosage: 5MG  1 CAP QD ORAL
     Route: 048
     Dates: start: 20080711, end: 20080712
  4. ALTRACE [Concomitant]
  5. RAMIPRIL [Concomitant]

REACTIONS (5)
  - FATIGUE [None]
  - VISION BLURRED [None]
  - DYSPNOEA [None]
  - PRODUCT SUBSTITUTION ISSUE [None]
  - ARTHRALGIA [None]
